FAERS Safety Report 4417615-7 (Version None)
Quarter: 2004Q3

REPORT INFORMATION
  Report Type: 
  Country: None (occurrence: None)
  Receive Date: 20040803
  Receipt Date: 20040720
  Transmission Date: 20050211
  Serious: Yes (Hospitalization)
  Sender: FDA-Public Use
  Company Number: 2004-FF-00436FF

PATIENT
  Age: 43 Year
  Sex: Male

DRUGS (12)
  1. VIRAMUNE [Suspect]
     Indication: HIV INFECTION
     Dosage: 400 MG (200 MG) PO
     Route: 048
     Dates: start: 20020626
  2. CRIXIVAN [Concomitant]
  3. NORVIR (RITRONAVIR) [Concomitant]
  4. COMBIVIR [Concomitant]
  5. ALVOCARDYL (PROPRANOLOL) (KAR) [Concomitant]
  6. LIPUR (GEMFIBROZIL) (TA) [Concomitant]
  7. BRICANYL [Concomitant]
  8. DOLIPRANE (PARACETAMOL) [Concomitant]
  9. PULMICORT [Concomitant]
  10. LOPERAMIDE HCL [Concomitant]
  11. IMOVANE (ZOPICLONE) [Concomitant]
  12. ZOVIRAX (ACICLOVIR SODIUM) [Concomitant]

REACTIONS (3)
  - ANGINA UNSTABLE [None]
  - CARDIAC DISORDER [None]
  - CORONARY ARTERY DISEASE [None]
